FAERS Safety Report 7909844-2 (Version None)
Quarter: 2011Q4

REPORT INFORMATION
  Report Type: 
  Country: None (occurrence: None)
  Receive Date: 20111111
  Receipt Date: 20111031
  Transmission Date: 20120403
  Serious: Yes (Hospitalization, Other)
  Sender: FDA-Public Use
  Company Number: JP-MERCK-1109USA02526

PATIENT
  Age: 67 Year
  Sex: Female

DRUGS (6)
  1. LAC-B [Concomitant]
     Indication: CONSTIPATION
     Route: 065
     Dates: start: 20101217, end: 20110105
  2. PHENOBARBITAL TAB [Suspect]
     Indication: BRAIN CONTUSION
     Route: 048
     Dates: start: 20101205, end: 20110104
  3. MERISLON [Suspect]
     Indication: DIZZINESS
     Route: 048
     Dates: start: 20101205, end: 20110105
  4. PEPCID RPD [Suspect]
     Indication: BRAIN CONTUSION
     Route: 048
     Dates: start: 20101203, end: 20110105
  5. CANDESARTAN CILEXETIL [Suspect]
     Indication: HYPERTENSION
     Route: 048
     Dates: start: 20101205, end: 20110104
  6. VASOTEC [Suspect]
     Indication: HYPERTENSION
     Route: 048
     Dates: start: 20101209, end: 20110104

REACTIONS (2)
  - DRUG ERUPTION [None]
  - LIVER DISORDER [None]
